FAERS Safety Report 17300751 (Version 1)
Quarter: 2020Q1

REPORT INFORMATION
  Report Type: Spontaneous
  Country: US (occurrence: US)
  Receive Date: 20200122
  Receipt Date: 20200122
  Transmission Date: 20200409
  Serious: No
  Sender: FDA-Public Use
  Company Number: US-ALLERGAN-1951980US

PATIENT
  Age: 23 Year
  Sex: Male

DRUGS (1)
  1. CYCLOSPORINE UNK [Suspect]
     Active Substance: CYCLOSPORINE
     Indication: ALOPECIA UNIVERSALIS

REACTIONS (1)
  - Drug ineffective for unapproved indication [Unknown]
